FAERS Safety Report 5517134-0 (Version None)
Quarter: 2007Q4

REPORT INFORMATION
  Report Type: 
  Country: None (occurrence: None)
  Receive Date: 20071114
  Receipt Date: 20071109
  Transmission Date: 20080405
  Serious: No
  Sender: FDA-Public Use
  Company Number: B0492054A

PATIENT
  Age: 78 Year
  Sex: Male
  Weight: 65 kg

DRUGS (5)
  1. VALTREX [Suspect]
     Indication: HERPES ZOSTER
     Dosage: 1000MG THREE TIMES PER DAY
     Route: 048
     Dates: start: 20071012, end: 20071016
  2. UNKNOWN DRUG [Concomitant]
     Dosage: 100MG PER DAY
     Route: 048
  3. GASMOTIN [Concomitant]
     Indication: CONSTIPATION
     Dosage: 15MG PER DAY
     Route: 048
     Dates: start: 20071002, end: 20071016
  4. MAGMITT [Concomitant]
     Indication: CONSTIPATION
     Dosage: 990MG PER DAY
     Route: 048
     Dates: start: 20071002, end: 20071016
  5. ADONA (AC-17) [Concomitant]
     Dosage: 90MG PER DAY
     Route: 048
     Dates: start: 20071012, end: 20071016

REACTIONS (5)
  - ANOREXIA [None]
  - BLOOD CREATININE INCREASED [None]
  - BLOOD URINE PRESENT [None]
  - MALAISE [None]
  - RENAL IMPAIRMENT [None]
